FAERS Safety Report 13711218 (Version 1)
Quarter: 2017Q3

REPORT INFORMATION
  Report Type: Spontaneous
  Country: FR (occurrence: FR)
  Receive Date: 20170703
  Receipt Date: 20170703
  Transmission Date: 20171127
  Serious: Yes (Hospitalization)
  Sender: FDA-Public Use
  Company Number: FR-MYLANLABS-2017M1039120

PATIENT

DRUGS (16)
  1. BENDAMUSTINE ACCORD [Suspect]
     Active Substance: BENDAMUSTINE
     Dosage: 120 MG/M2, CYCLE
     Route: 042
     Dates: start: 20170130, end: 20170130
  2. ETOPOSIDE MYLAN [Suspect]
     Active Substance: ETOPOSIDE
     Dosage: 500 MG, CYCLE
     Route: 042
     Dates: start: 20170315, end: 20170316
  3. ETOPOSIDE MYLAN [Suspect]
     Active Substance: ETOPOSIDE
     Indication: T-CELL LYMPHOMA STAGE IV
     Dosage: 500 MG, CYCLE
     Route: 042
     Dates: start: 20170222
  4. HOLOXAN [Suspect]
     Active Substance: IFOSFAMIDE
     Indication: T-CELL LYMPHOMA STAGE IV
     Dosage: 2500 MG, CYCLE
     Route: 042
     Dates: start: 20170222
  5. ROMIDEPSINE [Suspect]
     Active Substance: ROMIDEPSIN
     Indication: T-CELL LYMPHOMA STAGE IV
     Dosage: ONE/CYCLE
     Dates: start: 20170419
  6. ROMIDEPSINE [Suspect]
     Active Substance: ROMIDEPSIN
     Dosage: ONE/CYCLE
     Dates: start: 20170517
  7. GEMCITABINE [Suspect]
     Active Substance: GEMCITABINE\GEMCITABINE HYDROCHLORIDE
     Indication: T-CELL LYMPHOMA STAGE IV
     Dosage: 1900 MG, CYCLE
     Dates: start: 20161108
  8. OXALIPLATINE HOSPIRA [Suspect]
     Active Substance: OXALIPLATIN
     Indication: T-CELL LYMPHOMA STAGE IV
     Dosage: 190 MG, CYCLE
     Route: 042
     Dates: start: 20161108
  9. BENDAMUSTINE ACCORD [Suspect]
     Active Substance: BENDAMUSTINE
     Indication: T-CELL LYMPHOMA
     Dosage: 120 MG/M2, CYCLE
     Route: 042
     Dates: start: 20170109
  10. GEMCITABINE [Suspect]
     Active Substance: GEMCITABINE\GEMCITABINE HYDROCHLORIDE
     Dosage: 1900 MG, CYCLE
     Dates: start: 20161205, end: 20161205
  11. OXALIPLATINE HOSPIRA [Suspect]
     Active Substance: OXALIPLATIN
     Dosage: 190 MG, CYCLE
     Route: 042
     Dates: start: 20161122
  12. GEMCITABINE [Suspect]
     Active Substance: GEMCITABINE\GEMCITABINE HYDROCHLORIDE
     Dosage: 1900 MG, CYCLE
     Dates: start: 20161122
  13. ROMIDEPSINE [Suspect]
     Active Substance: ROMIDEPSIN
     Dosage: ONE/CYCLE
     Dates: start: 20170503
  14. ROMIDEPSINE [Suspect]
     Active Substance: ROMIDEPSIN
     Dosage: ONE/CYCLE
     Dates: start: 20170531, end: 20170531
  15. OXALIPLATINE HOSPIRA [Suspect]
     Active Substance: OXALIPLATIN
     Dosage: 190 MG, CYCLE
     Route: 042
     Dates: start: 20161205, end: 20161205
  16. HOLOXAN [Suspect]
     Active Substance: IFOSFAMIDE
     Dosage: 2500 MG, CYCLE
     Route: 042
     Dates: start: 20170315, end: 20170316

REACTIONS (1)
  - Acute myeloid leukaemia [Not Recovered/Not Resolved]

NARRATIVE: CASE EVENT DATE: 20170608
